FAERS Safety Report 16921625 (Version 4)
Quarter: 2019Q4

REPORT INFORMATION
  Report Type: Report from Study
  Country: US (occurrence: US)
  Receive Date: 20191015
  Receipt Date: 20191118
  Transmission Date: 20200122
  Serious: Yes (Life-Threatening, Hospitalization, Other)
  Sender: FDA-Public Use
  Company Number: NVSC2019US002677

PATIENT
  Age: 43 Year
  Sex: Female

DRUGS (4)
  1. PALBOCICLIB [Suspect]
     Active Substance: PALBOCICLIB
     Indication: BREAST CANCER
     Dosage: 75 MG, QD
     Route: 048
     Dates: start: 20180905
  2. ZOLADEX [Concomitant]
     Active Substance: GOSERELIN ACETATE
     Indication: BREAST CANCER
     Dosage: 3.6 MG, QMO
     Route: 058
     Dates: start: 20190913
  3. FEMARA [Suspect]
     Active Substance: LETROZOLE
     Indication: BREAST CANCER
     Dosage: 2.5 MG, QD
     Route: 048
     Dates: start: 20180905, end: 20190923
  4. FEMARA [Suspect]
     Active Substance: LETROZOLE
     Dosage: 2.5 MG, QD
     Route: 048
     Dates: start: 20190927

REACTIONS (5)
  - Campylobacter colitis [Recovered/Resolved]
  - Hypoaesthesia [Recovered/Resolved]
  - Cerebrovascular accident [Recovered/Resolved]
  - Dysarthria [Recovered/Resolved]
  - Ataxia [Recovered/Resolved]

NARRATIVE: CASE EVENT DATE: 20190507
